FAERS Safety Report 16187313 (Version 1)
Quarter: 2019Q2

REPORT INFORMATION
  Report Type: Spontaneous
  Country: US (occurrence: US)
  Receive Date: 20190412
  Receipt Date: 20190412
  Transmission Date: 20190711
  Serious: No
  Sender: FDA-Public Use
  Company Number: US-GLAXOSMITHKLINE-US2019GSK038870

PATIENT
  Sex: Female

DRUGS (2)
  1. MUPIROCIN. [Suspect]
     Active Substance: MUPIROCIN
     Indication: SKIN IRRITATION
  2. MUPIROCIN. [Suspect]
     Active Substance: MUPIROCIN
     Indication: ERYTHEMA
     Dosage: UNK

REACTIONS (1)
  - Arthropathy [Unknown]
